FAERS Safety Report 25763478 (Version 2)
Quarter: 2025Q3

REPORT INFORMATION
  Report Type: Spontaneous
  Country: US (occurrence: US)
  Receive Date: 20250905
  Receipt Date: 20250921
  Transmission Date: 20251021
  Serious: Yes (Other)
  Sender: TEVA
  Company Number: US-TEVA TEST AUTO-191518USA

PATIENT
  Age: 41 Year
  Sex: Female

DRUGS (3)
  1. FENTANYL [Suspect]
     Active Substance: FENTANYL
     Indication: Tarsal tunnel syndrome
     Route: 062
  2. HYDROCODONE [Suspect]
     Active Substance: HYDROCODONE
     Indication: Tarsal tunnel syndrome
     Route: 065
  3. ACETAZOLAMIDE [Concomitant]
     Active Substance: ACETAZOLAMIDE
     Indication: Product used for unknown indication
     Route: 065

REACTIONS (2)
  - Central sleep apnoea syndrome [Not Recovered/Not Resolved]
  - Obstructive sleep apnoea syndrome [Recovered/Resolved]
